FAERS Safety Report 18015808 (Version 1)
Quarter: 2020Q3

REPORT INFORMATION
  Report Type: Spontaneous
  Country: IN (occurrence: IN)
  Receive Date: 20200713
  Receipt Date: 20200713
  Transmission Date: 20201103
  Serious: Yes (Death, Hospitalization, Other)
  Sender: FDA-Public Use
  Company Number: IN-PFIZER INC-2020265608

PATIENT
  Age: 11 Year
  Sex: Female

DRUGS (5)
  1. PREDNISOLONE. [Concomitant]
     Active Substance: PREDNISOLONE
     Indication: OPTIC NEURITIS
     Dosage: 40 MG, DAILY (14 DAYS)
     Route: 048
  2. CEFTAZIDIME. [Suspect]
     Active Substance: CEFTAZIDIME
     Indication: ACUTE DISSEMINATED ENCEPHALOMYELITIS
     Dosage: 500 MG, 3X/DAY (500 MG, 8 HOURLY FOR 7 DAYS)
     Route: 042
  3. DIAZEPAM. [Concomitant]
     Active Substance: DIAZEPAM
     Dosage: 10 MG
     Route: 042
  4. METHYLPREDNISOLONE. [Suspect]
     Active Substance: METHYLPREDNISOLONE
     Indication: ACUTE DISSEMINATED ENCEPHALOMYELITIS
     Dosage: 1 G, DAILY (5 DAYS IN THE FIRST WEEK OF HOSPITALIZATION)
     Route: 042
  5. CEFTAZIDIME. [Suspect]
     Active Substance: CEFTAZIDIME
     Indication: INFECTION

REACTIONS (2)
  - Drug ineffective [Fatal]
  - Respiratory arrest [Fatal]
